FAERS Safety Report 24449809 (Version 1)
Quarter: 2024Q4

REPORT INFORMATION
  Report Type: Spontaneous
  Country: US (occurrence: None)
  Receive Date: 20241016
  Receipt Date: 20241016
  Transmission Date: 20250115
  Serious: Yes (Hospitalization)
  Sender: Public
  Company Number: None

PATIENT
  Age: 76 Year
  Sex: Male
  Weight: 83 kg

DRUGS (1)
  1. OXYCODONE HYDROCHLORIDE [Suspect]
     Active Substance: OXYCODONE HYDROCHLORIDE
     Indication: Back pain
     Dosage: FREQUENCY : AS NEEDED;?
     Route: 048
     Dates: start: 20240530

REACTIONS (3)
  - Delirium [None]
  - Acute kidney injury [None]
  - Intentional product use issue [None]

NARRATIVE: CASE EVENT DATE: 20240606
